FAERS Safety Report 6247687-9 (Version None)
Quarter: 2009Q2

REPORT INFORMATION
  Report Type: 
  Country: None (occurrence: None)
  Receive Date: 20090626
  Receipt Date: 20090619
  Transmission Date: 20091009
  Serious: Yes (Hospitalization, Other)
  Sender: FDA-Public Use
  Company Number: CA-ELI_LILLY_AND_COMPANY-CA200906005532

PATIENT
  Age: 49 Year
  Sex: Female

DRUGS (9)
  1. FORTEO [Suspect]
     Indication: OSTEOPOROSIS
     Dosage: 20 UG, DAILY (1/D)
     Dates: start: 20090220
  2. COUMADIN [Concomitant]
  3. CLONIDINE [Concomitant]
  4. DURAGESIC-100 [Concomitant]
     Route: 062
  5. DARVON [Concomitant]
     Route: 062
  6. MORPHINE [Concomitant]
  7. XANAX [Concomitant]
  8. LYRICA [Concomitant]
  9. ORPHENADRINE CITRATE [Concomitant]

REACTIONS (4)
  - CELLULITIS [None]
  - CONFUSIONAL STATE [None]
  - MALAISE [None]
  - TRANSIENT ISCHAEMIC ATTACK [None]
